FAERS Safety Report 4731563-4 (Version None)
Quarter: 2005Q3

REPORT INFORMATION
  Report Type: 
  Country: None (occurrence: None)
  Receive Date: 20050721
  Receipt Date: 20050328
  Transmission Date: 20060218
  Serious: Yes (Other)
  Sender: FDA-Public Use
  Company Number: 2005029310

PATIENT
  Age: 76 Year
  Sex: Male
  Weight: 90.2658 kg

DRUGS (12)
  1. INSPRA [Suspect]
     Indication: HYPERALDOSTERONISM
     Dosage: 50 MG (25 MG,BID  INTERVAL: EVERY DAY), ORAL
     Route: 048
     Dates: start: 20050203
  2. INSPRA [Suspect]
     Indication: HYPERTENSION
     Dosage: 50 MG (25 MG,BID  INTERVAL: EVERY DAY), ORAL
     Route: 048
     Dates: start: 20050203
  3. VYTORIN [Concomitant]
  4. ALDACTONE [Concomitant]
  5. LOPRESSOR [Concomitant]
  6. PROSCAR [Concomitant]
  7. TEGRETOL [Concomitant]
  8. COSOPT [Concomitant]
  9. COUMADIN [Concomitant]
  10. ATARAX [Concomitant]
  11. ZOCOR [Concomitant]
  12. XANAX [Concomitant]

REACTIONS (2)
  - BLOOD PRESSURE INCREASED [None]
  - HEADACHE [None]
